FAERS Safety Report 19433091 (Version 1)
Quarter: 2021Q2

REPORT INFORMATION
  Report Type: Spontaneous
  Country: US (occurrence: US)
  Receive Date: 20210617
  Receipt Date: 20210617
  Transmission Date: 20210717
  Serious: Yes (Life-Threatening, Hospitalization)
  Sender: FDA-Public Use
  Company Number: None

PATIENT
  Age: 22 Year
  Sex: Female
  Weight: 56.25 kg

DRUGS (9)
  1. OXBRYTA [Suspect]
     Active Substance: VOXELOTOR
     Indication: SICKLE CELL DISEASE
     Dosage: ?          QUANTITY:3 DF DOSAGE FORM;?
     Route: 048
     Dates: start: 20210303, end: 20210508
  2. PROCRIT [Concomitant]
     Active Substance: ERYTHROPOIETIN
  3. FOLIC ACID. [Concomitant]
     Active Substance: FOLIC ACID
  4. PARICALCITOL. [Concomitant]
     Active Substance: PARICALCITOL
  5. VITAMIN D2 [Concomitant]
     Active Substance: ERGOCALCIFEROL
  6. LORATADINE. [Concomitant]
     Active Substance: LORATADINE
  7. KEPPRA [Concomitant]
     Active Substance: LEVETIRACETAM
  8. HYDROCODONE?ACETAMINOPHEN [Concomitant]
     Active Substance: ACETAMINOPHEN\HYDROCODONE
  9. SODIUM BICARBONATE. [Concomitant]
     Active Substance: SODIUM BICARBONATE

REACTIONS (10)
  - Transfusion [None]
  - Subarachnoid haemorrhage [None]
  - Exchange blood transfusion [None]
  - Platelet transfusion [None]
  - Adverse drug reaction [None]
  - Seizure [None]
  - Hypovolaemia [None]
  - Pulmonary embolism [None]
  - Pain [None]
  - Sickle cell anaemia with crisis [None]

NARRATIVE: CASE EVENT DATE: 20210509
